FAERS Safety Report 5689568-5 (Version None)
Quarter: 2008Q1

REPORT INFORMATION
  Report Type: 
  Country: None (occurrence: None)
  Receive Date: 20080331
  Receipt Date: 20080321
  Transmission Date: 20080703
  Serious: Yes (Hospitalization, Other)
  Sender: FDA-Public Use
  Company Number: US-MERCK-0802USA00131

PATIENT
  Age: 51 Year
  Sex: Female
  Weight: 75 kg

DRUGS (1)
  1. FOSAMAX [Suspect]
     Indication: OSTEOPOROSIS
     Route: 048
     Dates: start: 20010705, end: 20040101

REACTIONS (20)
  - ANGINA PECTORIS [None]
  - ARTHROPOD BITE [None]
  - ATRIAL FIBRILLATION [None]
  - DEPRESSION [None]
  - DYSPNOEA EXERTIONAL [None]
  - GASTRITIS [None]
  - HYPERTENSION [None]
  - HYPERTHYROIDISM [None]
  - HYPOTHYROIDISM [None]
  - INSOMNIA [None]
  - MIGRAINE [None]
  - NON-CARDIAC CHEST PAIN [None]
  - OESOPHAGITIS [None]
  - OSTEONECROSIS [None]
  - OTITIS MEDIA [None]
  - PANIC ATTACK [None]
  - POLLAKIURIA [None]
  - REFLUX OESOPHAGITIS [None]
  - VITAMIN D DEFICIENCY [None]
  - WEIGHT DECREASED [None]
